FAERS Safety Report 5108574-2 (Version None)
Quarter: 2006Q3

REPORT INFORMATION
  Report Type: 
  Country: None (occurrence: None)
  Receive Date: 20060919
  Receipt Date: 20060515
  Transmission Date: 20061208
  Serious: Yes (Hospitalization)
  Sender: FDA-Public Use
  Company Number: MX-MERCK-0605MEX00022

PATIENT
  Age: 83 Year
  Sex: Female
  Weight: 50 kg

DRUGS (4)
  1. COSOPT [Suspect]
     Indication: INTRAOCULAR PRESSURE INCREASED
     Route: 047
     Dates: start: 20060101, end: 20060701
  2. PHENOBARBITAL [Concomitant]
     Indication: INTRAOCULAR PRESSURE INCREASED
     Route: 047
     Dates: start: 20060101, end: 20060101
  3. [THERAPY UNSPECIFIED] [Concomitant]
     Indication: INTRAOCULAR PRESSURE INCREASED
     Route: 047
     Dates: start: 20060101, end: 20060101
  4. [THERAPY UNSPECIFIED] [Concomitant]
     Indication: NERVOUS SYSTEM DISORDER
     Route: 048
     Dates: start: 19960101, end: 20060101

REACTIONS (8)
  - ABDOMINAL PAIN [None]
  - CHOLELITHIASIS [None]
  - DRY EYE [None]
  - GLAUCOMA [None]
  - NAUSEA [None]
  - VERTIGO [None]
  - VISION BLURRED [None]
  - VOMITING [None]
